FAERS Safety Report 19392902 (Version 1)
Quarter: 2021Q2

REPORT INFORMATION
  Report Type: Spontaneous
  Country: DE (occurrence: DE)
  Receive Date: 20210609
  Receipt Date: 20210609
  Transmission Date: 20210717
  Serious: Yes (Hospitalization, Other)
  Sender: FDA-Public Use
  Company Number: DE-AUROBINDO-AUR-APL-2017-06188

PATIENT
  Age: 77 Year
  Sex: Female

DRUGS (4)
  1. RISPERIDONE. [Suspect]
     Active Substance: RISPERIDONE
     Indication: DEPRESSIVE DELUSION
     Dosage: 2 MILLIGRAM, ONCE A DAY
     Route: 065
  2. CITALOPRAM [Interacting]
     Active Substance: CITALOPRAM HYDROBROMIDE
     Indication: DEPRESSIVE DELUSION
     Dosage: 20 MILLIGRAM, ONCE A DAY
     Route: 065
  3. RAMIPRIL. [Concomitant]
     Active Substance: RAMIPRIL
     Indication: PRODUCT USED FOR UNKNOWN INDICATION
     Dosage: UNK
     Route: 065
  4. NIFEDIPINE. [Concomitant]
     Active Substance: NIFEDIPINE
     Indication: PRODUCT USED FOR UNKNOWN INDICATION
     Dosage: UNK
     Route: 065

REACTIONS (4)
  - Electrocardiogram QT prolonged [Recovered/Resolved]
  - Sinus bradycardia [Unknown]
  - Drug interaction [Unknown]
  - Torsade de pointes [Recovered/Resolved]

NARRATIVE: CASE EVENT DATE: 200609
